FAERS Safety Report 9715999 (Version 1)
Quarter: 2013Q4

REPORT INFORMATION
  Report Type: Spontaneous
  Country: US (occurrence: None)
  Receive Date: 20131126
  Receipt Date: 20131126
  Transmission Date: 20140711
  Serious: Yes (Hospitalization)
  Sender: FDA-Public Use
  Company Number: None

PATIENT
  Age: 30 Year
  Sex: Female

DRUGS (2)
  1. LAMOTRIGINE 200 MG TABLETS [Suspect]
     Route: 048
     Dates: start: 20131005
  2. CARBAMAZEPINE 200 MG APOTEX [Suspect]
     Route: 048
     Dates: start: 20131009

REACTIONS (1)
  - Drug reaction with eosinophilia and systemic symptoms [None]
